FAERS Safety Report 20634856 (Version 10)
Quarter: 2022Q3

REPORT INFORMATION
  Report Type: Report from Study
  Country: US (occurrence: US)
  Receive Date: 20220325
  Receipt Date: 20220913
  Transmission Date: 20221026
  Serious: No
  Sender: FDA-Public Use
  Company Number: US-NOVARTISTESTPH-NVSC2022US067547

PATIENT
  Age: 75 Year
  Sex: Female

DRUGS (4)
  1. KESIMPTA [Suspect]
     Active Substance: OFATUMUMAB
     Indication: Relapsing multiple sclerosis
     Dosage: 20 MG, QW (20 MG / 0.4 ML)
     Route: 058
     Dates: start: 20220320
  2. KESIMPTA [Suspect]
     Active Substance: OFATUMUMAB
     Indication: Multiple sclerosis
  3. DALFAMPRIDINE [Concomitant]
     Active Substance: DALFAMPRIDINE
     Indication: Product used for unknown indication
     Dosage: UNK, QD
     Route: 065
  4. AMPYRA [Concomitant]
     Active Substance: DALFAMPRIDINE
     Indication: Product used for unknown indication
     Dosage: UNK
     Route: 065

REACTIONS (13)
  - Influenza like illness [Recovering/Resolving]
  - Chills [Recovered/Resolved]
  - Headache [Recovered/Resolved]
  - Pain [Recovering/Resolving]
  - Feeling cold [Unknown]
  - Lymphoedema [Unknown]
  - Fatigue [Unknown]
  - Bone pain [Unknown]
  - Chills [Recovering/Resolving]
  - Headache [Recovering/Resolving]
  - Pollakiuria [Unknown]
  - Feeling abnormal [Unknown]
  - Bone swelling [Unknown]

NARRATIVE: CASE EVENT DATE: 20220320
